FAERS Safety Report 24725116 (Version 2)
Quarter: 2024Q4

REPORT INFORMATION
  Report Type: Report from Study
  Country: DE (occurrence: DE)
  Receive Date: 20241212
  Receipt Date: 20241216
  Transmission Date: 20250115
  Serious: Yes (Hospitalization)
  Sender: UCB
  Company Number: DE-UCBSA-2024064493

PATIENT
  Sex: Female

DRUGS (11)
  1. CERTOLIZUMAB PEGOL [Suspect]
     Active Substance: CERTOLIZUMAB PEGOL
     Indication: Product used for unknown indication
     Dosage: 400 MILLIGRAM
     Dates: start: 20180321
  2. CERTOLIZUMAB PEGOL [Suspect]
     Active Substance: CERTOLIZUMAB PEGOL
     Dosage: 200 MILLIGRAM
     Dates: start: 20180321, end: 20180502
  3. IBUPROFEN [Concomitant]
     Active Substance: IBUPROFEN
     Indication: Product used for unknown indication
     Dosage: 1600 MILLIGRAM
     Dates: start: 20180115
  4. IBUPROFEN [Concomitant]
     Active Substance: IBUPROFEN
     Dosage: 1600 MILLIGRAM
     Dates: start: 20180115, end: 20180423
  5. IBUPROFEN [Concomitant]
     Active Substance: IBUPROFEN
     Dosage: 1800 MILLIGRAM
     Dates: start: 20190411
  6. IBUPROFEN [Concomitant]
     Active Substance: IBUPROFEN
     Dosage: 1200 MILLIGRAM
     Dates: start: 20190411, end: 20191015
  7. SIMPONI [Concomitant]
     Active Substance: GOLIMUMAB
     Indication: Product used for unknown indication
     Dosage: 50 MILLIGRAM
     Dates: start: 20190509, end: 20200115
  8. ETORICOXIB [Concomitant]
     Active Substance: ETORICOXIB
     Indication: Product used for unknown indication
     Dosage: 90 MILLIGRAM
     Dates: start: 20191031, end: 20191216
  9. NAPROXEN [Concomitant]
     Active Substance: NAPROXEN
     Indication: Product used for unknown indication
     Dosage: 1000 MILLIGRAM
     Dates: start: 20201130
  10. NAPROXEN [Concomitant]
     Active Substance: NAPROXEN
     Dosage: 750 MILLIGRAM
     Dates: start: 20210215
  11. NAPROXEN [Concomitant]
     Active Substance: NAPROXEN
     Dosage: 1000 MILLIGRAM
     Dates: start: 20221015

REACTIONS (3)
  - Axial spondyloarthritis [Unknown]
  - Arthralgia [Unknown]
  - Dry skin [Unknown]

NARRATIVE: CASE EVENT DATE: 20200615
